FAERS Safety Report 24946788 (Version 5)
Quarter: 2025Q3

REPORT INFORMATION
  Report Type: Report from Study
  Country: EU (occurrence: EU)
  Receive Date: 20250210
  Receipt Date: 20250930
  Transmission Date: 20251020
  Serious: Yes (Hospitalization)
  Sender: TAKEDA
  Company Number: EU-TAKEDA-2023TUS013262

PATIENT
  Age: 48 Year
  Sex: Female

DRUGS (11)
  1. PARATHYROID HORMONE [Suspect]
     Active Substance: PARATHYROID HORMONE
     Indication: Autoimmune hypoparathyroidism
     Dosage: 25 MILLIGRAM, QD
     Dates: start: 20210329
  2. PARATHYROID HORMONE [Suspect]
     Active Substance: PARATHYROID HORMONE
     Indication: Thyroid disorder
     Dosage: 50 MILLIGRAM, QD
  3. PARATHYROID HORMONE [Suspect]
     Active Substance: PARATHYROID HORMONE
     Indication: Hypoparathyroidism
     Dosage: 75 MILLIGRAM, QD
     Dates: start: 2022
  4. PARATHYROID HORMONE [Suspect]
     Active Substance: PARATHYROID HORMONE
     Indication: Hypothyroidism
     Dosage: 75 MILLIGRAM, QD
     Dates: start: 20250113
  5. PARATHYROID HORMONE [Suspect]
     Active Substance: PARATHYROID HORMONE
  6. PARATHYROID HORMONE [Suspect]
     Active Substance: PARATHYROID HORMONE
     Dosage: 75 MILLIGRAM, QD
     Dates: end: 20250919
  7. CALCIUM [Suspect]
     Active Substance: CALCIUM
     Indication: Product used for unknown indication
  8. MAGNESIUM [Suspect]
     Active Substance: MAGNESIUM
     Indication: Product used for unknown indication
  9. Calcioral [Concomitant]
     Indication: Supplementation therapy
     Dosage: UNK, QD
  10. ACETAMINOPHEN\CAFFEINE\PROPYPHENAZONE [Concomitant]
     Active Substance: ACETAMINOPHEN\CAFFEINE\PROPYPHENAZONE
     Dosage: UNK UNK, QD
  11. Trofocard [Concomitant]
     Dosage: UNK, QD

REACTIONS (7)
  - Malaise [Unknown]
  - Blood calcium abnormal [Unknown]
  - Hypoaesthesia [Unknown]
  - Drug ineffective [Unknown]
  - Device information output issue [Unknown]
  - Device malfunction [Unknown]
  - Product dose omission issue [Unknown]

NARRATIVE: CASE EVENT DATE: 20240101
